FAERS Safety Report 4855319-7 (Version None)
Quarter: 2005Q4

REPORT INFORMATION
  Report Type: 
  Country: None (occurrence: None)
  Receive Date: 20051125
  Receipt Date: 20050713
  Transmission Date: 20060501
  Serious: Yes (Other)
  Sender: FDA-Public Use
  Company Number: US-JNJFOC-20050702744

PATIENT
  Age: 68 Year
  Sex: Male

DRUGS (2)
  1. LEVAQUIN [Suspect]
     Dosage: 500 MG, 1 IN 1 DAY, ORAL
     Route: 048
     Dates: start: 20050601, end: 20050601
  2. PREDNISONE [Concomitant]

REACTIONS (1)
  - TENDON RUPTURE [None]
